FAERS Safety Report 10263232 (Version 2)
Quarter: 2014Q2

REPORT INFORMATION
  Report Type: Report from Study
  Country: US (occurrence: US)
  Receive Date: 20140626
  Receipt Date: 20140626
  Transmission Date: 20141212
  Serious: Yes (Other)
  Sender: FDA-Public Use
  Company Number: US-MYLANLABS-2014S1009835

PATIENT
  Age: 37 Year
  Sex: Male
  Weight: 87.7 kg

DRUGS (2)
  1. CLOZAPINE TABLETS [Suspect]
     Indication: SCHIZOPHRENIA
     Route: 048
     Dates: end: 20140421
  2. ANTIBIOTICS [Concomitant]
     Indication: SINUSITIS
     Route: 042

REACTIONS (1)
  - Granulocytopenia [Recovered/Resolved]
